FAERS Safety Report 10196254 (Version 2)
Quarter: 2014Q2

REPORT INFORMATION
  Report Type: Report from Study
  Country: CA (occurrence: CA)
  Receive Date: 20140527
  Receipt Date: 20140619
  Transmission Date: 20141212
  Serious: Yes (Hospitalization)
  Sender: FDA-Public Use
  Company Number: CA-JNJFOC-20140510757

PATIENT
  Age: 69 Year
  Sex: Male
  Weight: 100 kg

DRUGS (8)
  1. REMICADE [Suspect]
     Indication: CROHN^S DISEASE
     Route: 042
     Dates: start: 20120420
  2. PANTOLOC [Concomitant]
     Route: 065
  3. HYDROMORPH CONTIN [Concomitant]
     Route: 065
  4. METOPROLOL [Concomitant]
     Route: 065
  5. AMLODIPINE [Concomitant]
     Route: 065
  6. RAMIPRIL [Concomitant]
     Route: 065
  7. ACETYLSALYCILIC ACID [Concomitant]
     Route: 065
  8. CRESTOR [Concomitant]
     Route: 065

REACTIONS (3)
  - Dehydration [Not Recovered/Not Resolved]
  - Vomiting [Not Recovered/Not Resolved]
  - Drug ineffective [Unknown]
